FAERS Safety Report 24339475 (Version 1)
Quarter: 2024Q3

REPORT INFORMATION
  Report Type: Spontaneous
  Country: ES (occurrence: ES)
  Receive Date: 20240919
  Receipt Date: 20240919
  Transmission Date: 20241017
  Serious: Yes (Other)
  Sender: Atnahs Healthcare
  Company Number: ES-SAMSUNG BIOEPIS-SB-2024-26651

PATIENT
  Age: 29 Year
  Sex: Female

DRUGS (2)
  1. NAPROXEN [Suspect]
     Active Substance: NAPROXEN
     Indication: Hidradenitis
  2. ADALIMUMAB [Suspect]
     Active Substance: ADALIMUMAB
     Indication: Hidradenitis

REACTIONS (4)
  - Acute phase reaction [Unknown]
  - Therapy partial responder [Unknown]
  - Seronegative arthritis [Unknown]
  - Arthritis [Unknown]
